FAERS Safety Report 15486372 (Version 2)
Quarter: 2018Q4

REPORT INFORMATION
  Report Type: Spontaneous
  Country: US (occurrence: US)
  Receive Date: 20181011
  Receipt Date: 20181115
  Transmission Date: 20190205
  Serious: Yes (Hospitalization, Disabling)
  Sender: FDA-Public Use
  Company Number: US-ASTRAZENECA-2018SF19938

PATIENT
  Age: 66 Year
  Sex: Male
  Weight: 74.8 kg

DRUGS (2)
  1. FASENRA [Suspect]
     Active Substance: BENRALIZUMAB
     Indication: ASTHMA
     Dosage: 30 MG, ONCE EVERY 4 WEEKS FOR THE FIRST 3 DOSES, AND THEN ONCE EVERY 8 WEEKS AFTER
     Route: 058
     Dates: start: 201806
  2. FASENRA [Suspect]
     Active Substance: BENRALIZUMAB
     Indication: ASTHMA
     Dosage: 30 MG, ONCE EVERY 4 WEEKS FOR THE FIRST 3 DOSES, AND THEN ONCE EVERY 8 WEEKS AFTER
     Route: 058
     Dates: start: 20180301

REACTIONS (1)
  - Nerve compression [Unknown]
